FAERS Safety Report 6765564-1 (Version None)
Quarter: 2010Q2

REPORT INFORMATION
  Report Type: 
  Country: None (occurrence: None)
  Receive Date: 20100611
  Receipt Date: 20100607
  Transmission Date: 20101027
  Serious: Yes (Death, Other)
  Sender: FDA-Public Use
  Company Number: PHHY2009GR09205

PATIENT
  Age: 76 Year
  Sex: Male

DRUGS (2)
  1. GLEEVEC [Suspect]
     Indication: CHRONIC MYELOID LEUKAEMIA
     Dosage: 400 MG, QD
  2. RED BLOOD CELLS [Concomitant]

REACTIONS (5)
  - ANAEMIA [None]
  - BLAST CRISIS IN MYELOGENOUS LEUKAEMIA [None]
  - CYTOGENETIC ANALYSIS ABNORMAL [None]
  - MULTIPLE MYELOMA [None]
  - UPPER GASTROINTESTINAL HAEMORRHAGE [None]
